FAERS Safety Report 8061399-0 (Version None)
Quarter: 2012Q1

REPORT INFORMATION
  Report Type: 
  Country: None (occurrence: None)
  Receive Date: 20120120
  Receipt Date: 20111006
  Transmission Date: 20120608
  Serious: No
  Sender: FDA-Public Use
  Company Number: US-ALLERGAN-1113260US

PATIENT
  Age: 56 Year
  Sex: Female

DRUGS (1)
  1. RESTASIS [Suspect]
     Indication: DRY EYE
     Dosage: 1 GTT, QHS
     Route: 047
     Dates: start: 20111001, end: 20111002

REACTIONS (3)
  - EYE PRURITUS [None]
  - INTRAOCULAR PRESSURE INCREASED [None]
  - FOREIGN BODY SENSATION IN EYES [None]
